FAERS Safety Report 10727630 (Version 1)
Quarter: 2015Q1

REPORT INFORMATION
  Report Type: Spontaneous
  Country: US (occurrence: US)
  Receive Date: 20150121
  Receipt Date: 20150121
  Transmission Date: 20150721
  Serious: No
  Sender: FDA-Public Use
  Company Number: US-GLAXOSMITHKLINE-US2014GSK047700

PATIENT
  Age: 50 Year
  Sex: Male

DRUGS (6)
  1. FLONASE [Suspect]
     Active Substance: FLUTICASONE PROPIONATE
     Indication: EXPOSURE TO ALLERGEN
     Dosage: 2 DF, BID
     Route: 045
     Dates: start: 201411
  2. AVAPRO [Concomitant]
     Active Substance: IRBESARTAN
  3. FLONASE [Suspect]
     Active Substance: FLUTICASONE PROPIONATE
     Indication: NASAL POLYPS
  4. FLONASE [Suspect]
     Active Substance: FLUTICASONE PROPIONATE
     Indication: ANOSMIA
  5. SIMVASTATIN. [Concomitant]
     Active Substance: SIMVASTATIN
  6. KRILL OIL [Concomitant]
     Active Substance: DIETARY SUPPLEMENT

REACTIONS (3)
  - Overdose [Unknown]
  - Therapeutic response unexpected [Unknown]
  - Off label use [Unknown]

NARRATIVE: CASE EVENT DATE: 201411
